FAERS Safety Report 5056909-1 (Version None)
Quarter: 2006Q2

REPORT INFORMATION
  Report Type: 
  Country: None (occurrence: None)
  Receive Date: 20060622
  Receipt Date: 20051111
  Transmission Date: 20061013
  Serious: Yes (Hospitalization)
  Sender: FDA-Public Use
  Company Number: US-JNJFOC-20051005881

PATIENT
  Age: 65 Year
  Sex: Male
  Weight: 154.223 kg

DRUGS (8)
  1. SANDOZ FENTANYL TRANSDERMAL SYSTEM (FENTANYL) PATCH [Suspect]
     Indication: PAIN
     Dosage: 150 UG/HR, 1 IN 60 HOUR, TRANSDERMAL
     Route: 062
     Dates: start: 20050801
  2. LASIX [Concomitant]
  3. PREDNISONE (PREDNISONE) TABLET [Concomitant]
  4. PREVACID [Concomitant]
  5. MAXZIDE (DYAZIDE) TABLET [Concomitant]
  6. LANTUS INSULIN (INSULIN GLARGINE) SOLUTION [Concomitant]
  7. NOVOLOG INSULIN (INSULIN) SUSPENSION [Concomitant]
  8. OXYGEN (OXYGEN) [Concomitant]

REACTIONS (1)
  - LOSS OF CONSCIOUSNESS [None]
